FAERS Safety Report 17914402 (Version 1)
Quarter: 2020Q2

REPORT INFORMATION
  Report Type: Spontaneous
  Country: DE (occurrence: FR)
  Receive Date: 20200618
  Receipt Date: 20200618
  Transmission Date: 20200714
  Serious: Yes (Death)
  Sender: FDA-Public Use
  Company Number: FR-ELI_LILLY_AND_COMPANY-FR202006007006

PATIENT
  Age: 61 Year
  Sex: Female
  Weight: 75 kg

DRUGS (4)
  1. CISPLATINE [Suspect]
     Active Substance: CISPLATIN
     Indication: OROPHARYNGEAL CANCER
     Dosage: 173 MG, UNK
     Route: 042
     Dates: start: 20200117, end: 20200408
  2. OPDIVO [Suspect]
     Active Substance: NIVOLUMAB
     Indication: OROPHARYNGEAL CANCER
     Dosage: 480 MG, UNK
     Route: 042
     Dates: start: 20200421, end: 20200421
  3. FLUOROURACILE [Concomitant]
     Active Substance: FLUOROURACIL
     Indication: OROPHARYNGEAL CANCER
     Dosage: 6900 MG, UNK
     Route: 041
     Dates: start: 20200117, end: 20200408
  4. ERBITUX [Suspect]
     Active Substance: CETUXIMAB
     Indication: OROPHARYNGEAL CANCER
     Dosage: 1305 MG, UNK
     Route: 042
     Dates: start: 20200117, end: 20200408

REACTIONS (2)
  - Interstitial lung disease [Fatal]
  - Acute respiratory distress syndrome [Fatal]

NARRATIVE: CASE EVENT DATE: 20200422
